FAERS Safety Report 8956823 (Version 2)
Quarter: 2013Q1

REPORT INFORMATION
  Report Type: Spontaneous
  Country: US (occurrence: US)
  Receive Date: 20121210
  Receipt Date: 20130115
  Transmission Date: 20140127
  Serious: Yes (Hospitalization)
  Sender: FDA-Public Use
  Company Number: US-ROCHE-1136429

PATIENT
  Age: 54 Year
  Sex: Female

DRUGS (4)
  1. PEGASYS [Suspect]
     Indication: CHRONIC HEPATITIS C
     Route: 058
     Dates: start: 20120730
  2. REBETOL [Suspect]
     Indication: CHRONIC HEPATITIS C
     Dosage: IN DIVIDED DOSES
     Route: 048
     Dates: start: 20120730
  3. REBETOL [Suspect]
     Dosage: DOSE REDUCED (UNKNOWN)
     Route: 048
  4. INCIVEK [Suspect]
     Indication: CHRONIC HEPATITIS C
     Route: 065
     Dates: start: 20120730

REACTIONS (29)
  - Hyperkeratosis [Unknown]
  - Haemoglobin decreased [Unknown]
  - White blood cell count decreased [Unknown]
  - Nausea [Unknown]
  - Malaise [Unknown]
  - Restlessness [Unknown]
  - Arthralgia [Unknown]
  - Myalgia [Unknown]
  - Eczema [Unknown]
  - Rash [Unknown]
  - Red blood cell count decreased [Unknown]
  - Pruritus [Unknown]
  - Fatigue [Recovering/Resolving]
  - Asthenia [Unknown]
  - Therapeutic response delayed [Unknown]
  - Viral load decreased [Unknown]
  - Fibrosis [Unknown]
  - Anaemia [Recovering/Resolving]
  - Pruritus [Unknown]
  - Fibrosis [Unknown]
  - Nausea [Unknown]
  - Vomiting [Unknown]
  - Dehydration [Unknown]
  - Erosive oesophagitis [Unknown]
  - Gastrointestinal haemorrhage [Unknown]
  - Dyspepsia [Unknown]
  - Nausea [Unknown]
  - Dizziness [Unknown]
  - Dyspnoea [Unknown]
